FAERS Safety Report 5491882-3 (Version None)
Quarter: 2007Q4

REPORT INFORMATION
  Report Type: 
  Country: None (occurrence: None)
  Receive Date: 20071022
  Receipt Date: 20071019
  Transmission Date: 20080405
  Serious: Yes (Death)
  Sender: FDA-Public Use
  Company Number: US-ASTRAZENECA-2007UW24280

PATIENT
  Age: 66 Year
  Sex: Male
  Weight: 90.7 kg

DRUGS (6)
  1. SEROQUEL [Suspect]
     Route: 048
     Dates: start: 20061228, end: 20070119
  2. SONATA [Concomitant]
  3. OXYCODONE HCL [Concomitant]
  4. GLIPIZIDE [Concomitant]
  5. PRANDIN [Concomitant]
  6. NOVOLIN 50/50 [Concomitant]
     Dosage: SLIDING SCALE

REACTIONS (1)
  - RENAL FAILURE [None]
